FAERS Safety Report 21689023 (Version 1)
Quarter: 2022Q4

REPORT INFORMATION
  Report Type: Spontaneous
  Country: CA (occurrence: CA)
  Receive Date: 20221206
  Receipt Date: 20221206
  Transmission Date: 20230113
  Serious: Yes (Other)
  Sender: FDA-Public Use
  Company Number: CA-PFIZER INC-202201348425

PATIENT
  Age: 46 Year
  Sex: Male
  Weight: 104.32 kg

DRUGS (1)
  1. METHOTREXATE SODIUM [Suspect]
     Active Substance: METHOTREXATE SODIUM
     Indication: Colitis ulcerative
     Dosage: 10 MG, WEEKLY

REACTIONS (3)
  - Haematochezia [Unknown]
  - Frequent bowel movements [Unknown]
  - Off label use [Unknown]

NARRATIVE: CASE EVENT DATE: 20221101
